FAERS Safety Report 9266677 (Version 1)
Quarter: 2013Q2

REPORT INFORMATION
  Report Type: Spontaneous
  Country: US (occurrence: US)
  Receive Date: 20130502
  Receipt Date: 20130502
  Transmission Date: 20140414
  Serious: Yes (Hospitalization, Other)
  Sender: FDA-Public Use
  Company Number: US-BAYER-2013-052076

PATIENT
  Age: 24 Year
  Sex: Female

DRUGS (4)
  1. YASMIN [Suspect]
  2. WELLBUTRIN [Concomitant]
  3. KEFLEX [Concomitant]
  4. ADVIL [Concomitant]

REACTIONS (2)
  - Cholecystitis chronic [None]
  - Thrombophlebitis superficial [None]
